FAERS Safety Report 7083197-7 (Version None)
Quarter: 2010Q4

REPORT INFORMATION
  Report Type: 
  Country: None (occurrence: None)
  Receive Date: 20101027
  Receipt Date: 20101015
  Transmission Date: 20110411
  Serious: Yes (Life-Threatening, Hospitalization)
  Sender: FDA-Public Use
  Company Number: GER/UKI/10/0016361

PATIENT
  Age: 75 Year
  Sex: Female

DRUGS (7)
  1. ALENDRONIC ACID (ALENDRONIC ACID) [Suspect]
     Indication: OSTEOPOROSIS PROPHYLAXIS
     Dosage: 70 MG, TOTAL, ORAL
     Route: 048
     Dates: start: 20100714, end: 20100714
  2. ACYCLOVIR [Concomitant]
  3. BISPHOSPHONATES (BISPHOSPHONATES) [Concomitant]
  4. CALCICHEW (CALCIUM CARBONATE) [Concomitant]
  5. OMEPRAZOLE [Concomitant]
  6. PREDNISOLONE [Concomitant]
  7. SIMVASTATIN [Concomitant]

REACTIONS (1)
  - IDIOPATHIC THROMBOCYTOPENIC PURPURA [None]
